FAERS Safety Report 24549594 (Version 1)
Quarter: 2024Q4

REPORT INFORMATION
  Report Type: Spontaneous
  Country: SE (occurrence: SE)
  Receive Date: 20241025
  Receipt Date: 20241025
  Transmission Date: 20250115
  Serious: Yes (Other)
  Sender: ROCHE
  Company Number: None

PATIENT
  Age: 80 Year
  Sex: Female

DRUGS (2)
  1. TOCILIZUMAB [Suspect]
     Active Substance: TOCILIZUMAB
     Indication: Product used for unknown indication
     Route: 065
     Dates: start: 20240419, end: 20240924
  2. MEBEVERINE [Concomitant]
     Active Substance: MEBEVERINE
     Indication: Diverticulum

REACTIONS (1)
  - Anaemia [Not Recovered/Not Resolved]
